FAERS Safety Report 9325532 (Version 3)
Quarter: 2016Q2

REPORT INFORMATION
  Report Type: Spontaneous
  Country: AU (occurrence: AU)
  Receive Date: 20130604
  Receipt Date: 20160504
  Transmission Date: 20160815
  Serious: Yes (Other)
  Sender: FDA-Public Use
  Company Number: AU-VERTEX PHARMACEUTICALS INC-2013-006694

PATIENT
  Age: 56 Year
  Sex: Female
  Weight: 90 kg

DRUGS (5)
  1. RIBAVIRIN. [Suspect]
     Active Substance: RIBAVIRIN
     Indication: PRODUCT USED FOR UNKNOWN INDICATION
     Dosage: 200 MG, QD
     Route: 065
     Dates: start: 20130313
  2. PEGYLATED INTERFERON ALPHA NOS [Suspect]
     Active Substance: PEGINTERFERON ALFA-2A OR PEGINTERFERON ALFA-2B
     Indication: PRODUCT USED FOR UNKNOWN INDICATION
     Dosage: 180 ?G, QW
     Route: 058
     Dates: start: 20130313
  3. ZANTAC [Suspect]
     Active Substance: RANITIDINE HYDROCHLORIDE
     Indication: PRODUCT USED FOR UNKNOWN INDICATION
     Dosage: 150 MG, QD
     Route: 065
  4. PHENERGAN [Suspect]
     Active Substance: PROMETHAZINE HYDROCHLORIDE
     Indication: ANTIALLERGIC THERAPY
     Dosage: 25 MG, BID
     Route: 065
  5. INCIVO [Suspect]
     Active Substance: TELAPREVIR
     Indication: HEPATITIS C
     Dosage: 750 MG, TID
     Route: 065
     Dates: start: 20130313, end: 20130528

REACTIONS (7)
  - Rash pruritic [Recovering/Resolving]
  - Mouth ulceration [Recovered/Resolved]
  - Pyrexia [Recovering/Resolving]
  - Rectal ulcer [Unknown]
  - Urinary tract infection [Recovering/Resolving]
  - Eosinophilia [Unknown]
  - Eye swelling [Not Recovered/Not Resolved]

NARRATIVE: CASE EVENT DATE: 20130326
